FAERS Safety Report 18335948 (Version 1)
Quarter: 2020Q4

REPORT INFORMATION
  Report Type: Spontaneous
  Country: US (occurrence: US)
  Receive Date: 20201001
  Receipt Date: 20201001
  Transmission Date: 20210113
  Serious: Yes (Hospitalization)
  Sender: FDA-Public Use
  Company Number: US-FRESENIUS MEDICAL CARE RENAL THERAPIES GROUP-FMC-2009-001132

PATIENT
  Age: 68 Year
  Sex: Female
  Weight: 91.2 kg

DRUGS (15)
  1. LOVASTATIN. [Concomitant]
     Active Substance: LOVASTATIN
  2. DELFLEX WITH DEXTROSE 2.5% LOW MAGNESIUM LOW CALCIUM [Suspect]
     Active Substance: CALCIUM CHLORIDE\DEXTROSE\MAGNESIUM CHLORIDE\SODIUM CHLORIDE\SODIUM LACTATE
     Indication: END STAGE RENAL DISEASE
     Dosage: 7 DAYS A WEEK, FILL VOLUME 2000 ML, 4 MANUAL EXCHANGES PER DAY, DWELL TIME 2.0 HOURS, SINCE 09JAN202
     Route: 033
     Dates: start: 20200109
  3. ALLOPURINOL. [Concomitant]
     Active Substance: ALLOPURINOL
  4. RENVELA [Concomitant]
     Active Substance: SEVELAMER CARBONATE
  5. DELFLEX WITH DEXTROSE 4.25% LOW MAGNESIUM LOW CALCIUM [Suspect]
     Active Substance: CALCIUM CHLORIDE\DEXTROSE\MAGNESIUM CHLORIDE\SODIUM CHLORIDE\SODIUM LACTATE
     Indication: END STAGE RENAL DISEASE
     Dosage: 7 DAYS A WEEK, FILL VOLUME 2000 ML, 4 MANUAL EXCHANGES PER DAY, DWELL TIME 2.0 HOURS, SINCE 09JAN202
     Route: 033
     Dates: start: 20200109
  6. ASPIRIN. [Concomitant]
     Active Substance: ASPIRIN
  7. CARVEDILOL. [Concomitant]
     Active Substance: CARVEDILOL
  8. INSULIN [Concomitant]
     Active Substance: INSULIN NOS
  9. VITAMINS NOS [Concomitant]
     Active Substance: VITAMINS
  10. CALCITRIOL. [Concomitant]
     Active Substance: CALCITRIOL
  11. HYDRALAZINE [Concomitant]
     Active Substance: HYDRALAZINE HYDROCHLORIDE
  12. DELFLEX WITH DEXTROSE 1.5% LOW MAGNESIUM LOW CALCIUM [Suspect]
     Active Substance: CALCIUM CHLORIDE\DEXTROSE\MAGNESIUM CHLORIDE\SODIUM CHLORIDE\SODIUM LACTATE
     Indication: END STAGE RENAL DISEASE
     Dosage: 7 DAYS A WEEK, FILL VOLUME 2000 ML, 4 MANUAL EXCHANGES PER DAY, DWELL TIME 2.0 HOURS, SINCE 09JAN202
     Route: 033
     Dates: start: 20200109
  13. AMLODIPINE [Concomitant]
     Active Substance: AMLODIPINE BESYLATE
  14. LASIX [Concomitant]
     Active Substance: FUROSEMIDE
  15. SODIUM BICARBONATE. [Concomitant]
     Active Substance: SODIUM BICARBONATE

REACTIONS (1)
  - Peritonitis bacterial [Recovering/Resolving]
